FAERS Safety Report 9771074 (Version 2)
Quarter: 2014Q1

REPORT INFORMATION
  Report Type: Spontaneous
  Country: SE (occurrence: SE)
  Receive Date: 20131218
  Receipt Date: 20140211
  Transmission Date: 20141002
  Serious: Yes (Hospitalization)
  Sender: FDA-Public Use
  Company Number: SE-PFIZER INC-2013362089

PATIENT
  Age: 26 Year
  Sex: Male

DRUGS (3)
  1. LYRICA [Suspect]
  2. SOBRIL [Suspect]
  3. PANOCOD [Suspect]

REACTIONS (2)
  - Toxicity to various agents [Recovered/Resolved]
  - Suicidal ideation [Unknown]
